FAERS Safety Report 4497226-8 (Version None)
Quarter: 2004Q3

REPORT INFORMATION
  Report Type: 
  Country: None (occurrence: None)
  Receive Date: 20040927
  Receipt Date: 20040527
  Transmission Date: 20050211
  Serious: No
  Sender: FDA-Public Use
  Company Number: USA040568818

PATIENT
  Age: 11 Year
  Sex: Male
  Weight: 49 kg

DRUGS (2)
  1. STRATTERA [Suspect]
     Indication: ATTENTION DEFICIT/HYPERACTIVITY DISORDER
     Dosage: 18 MG DAY
     Dates: start: 20040527
  2. ZOLOFT [Concomitant]

REACTIONS (2)
  - ABDOMINAL PAIN UPPER [None]
  - CHILLS [None]
